FAERS Safety Report 5644755-7 (Version None)
Quarter: 2008Q1

REPORT INFORMATION
  Report Type: 
  Country: None (occurrence: None)
  Receive Date: 20080229
  Receipt Date: 20070718
  Transmission Date: 20080703
  Serious: No
  Sender: FDA-Public Use
  Company Number: A0664851A

PATIENT
  Sex: Female

DRUGS (2)
  1. VALTREX [Suspect]
     Route: 048
     Dates: start: 20070711
  2. NO CONCURRENT MEDICATION [Concomitant]

REACTIONS (2)
  - HYPOAESTHESIA [None]
  - PHARMACEUTICAL PRODUCT COMPLAINT [None]
